FAERS Safety Report 8447047-6 (Version None)
Quarter: 2012Q2

REPORT INFORMATION
  Report Type: 
  Country: None (occurrence: None)
  Receive Date: 20120619
  Receipt Date: 20120618
  Transmission Date: 20120825
  Serious: Yes (Death)
  Sender: FDA-Public Use
  Company Number: US-PFIZER INC-HQWYE560806OCT04

PATIENT
  Age: 40 Year

DRUGS (3)
  1. VENLAFAXINE HCL [Suspect]
     Dosage: UNK
     Route: 048
     Dates: start: 20030101, end: 20030101
  2. COCAINE [Suspect]
     Dosage: UNK
     Route: 055
     Dates: start: 20030101, end: 20030101
  3. VERAPAMIL HCL [Suspect]
     Dosage: UNK
     Route: 048
     Dates: start: 20030101, end: 20030101

REACTIONS (3)
  - COMPLETED SUICIDE [None]
  - MULTIPLE DRUG OVERDOSE INTENTIONAL [None]
  - INTENTIONAL OVERDOSE [None]
